FAERS Safety Report 7408253-2 (Version None)
Quarter: 2011Q2

REPORT INFORMATION
  Report Type: 
  Country: None (occurrence: None)
  Receive Date: 20110412
  Receipt Date: 20110228
  Transmission Date: 20111010
  Serious: No
  Sender: FDA-Public Use
  Company Number: A0916356A

PATIENT
  Sex: Male

DRUGS (2)
  1. UNKNOWN [Concomitant]
  2. JALYN [Suspect]
     Dosage: 1CAP UNKNOWN
     Route: 048

REACTIONS (1)
  - PRURITUS [None]
